FAERS Safety Report 14028648 (Version 1)
Quarter: 2017Q4

REPORT INFORMATION
  Report Type: Spontaneous
  Country: US (occurrence: None)
  Receive Date: 20171002
  Receipt Date: 20171002
  Transmission Date: 20180321
  Serious: Yes (Disabling)
  Sender: FDA-Public Use
  Company Number: None

PATIENT
  Age: 68 Year
  Sex: Female
  Weight: 60.78 kg

DRUGS (17)
  1. CLONOZEPAM (GENERIC FOR KLONOPIN) [Concomitant]
     Active Substance: CLONAZEPAM
  2. DILAUDID [Concomitant]
     Active Substance: HYDROMORPHONE HYDROCHLORIDE
  3. CALCIUM [Concomitant]
     Active Substance: CALCIUM
  4. LEVATHYROXINE [Concomitant]
  5. VITAMIN C + D [Concomitant]
  6. MULTIVITAMIN [Concomitant]
     Active Substance: VITAMINS
  7. CIPROFLOXACIN. [Suspect]
     Active Substance: CIPROFLOXACIN
     Indication: URINARY TRACT INFECTION
     Dosage: 500 MG, 10 PILLS, 2 A DAY FOR 5 DAYS, MOUTH
     Route: 048
     Dates: start: 20170131, end: 20170204
  8. FIBERCON [Concomitant]
     Active Substance: CALCIUM POLYCARBOPHIL
  9. FLEXEVIL [Concomitant]
  10. HAIR SKIN + NAILS [Concomitant]
  11. NIACIN. [Concomitant]
     Active Substance: NIACIN
  12. PROBIOTIC [Concomitant]
     Active Substance: PROBIOTICS NOS
  13. FLAXSEED [Concomitant]
     Active Substance: FLAX SEED
  14. SUPER B COMPLEX [Concomitant]
     Active Substance: CYANOCOBALAMIN\DEXPANTHENOL\NIACINAMIDE\PYRIDOXINE HYDROCHLORIDE\RIBOFLAVIN 5^-PHOSPHATE SODIUM\THIAMINE HYDROCHLORIDE\VITAMIN B COMPLEX
  15. MSM [Concomitant]
     Active Substance: DIMETHYL SULFONE
  16. BIOTIN [Concomitant]
     Active Substance: BIOTIN
  17. COLLAGEN [Concomitant]
     Active Substance: COLLAGEN

REACTIONS (10)
  - Pain [None]
  - Musculoskeletal stiffness [None]
  - Nightmare [None]
  - Dysgraphia [None]
  - Tendonitis [None]
  - Neuropathy peripheral [None]
  - Vision blurred [None]
  - Gait disturbance [None]
  - Myositis [None]
  - Haematuria [None]

NARRATIVE: CASE EVENT DATE: 20170202
